FAERS Safety Report 19460347 (Version 1)
Quarter: 2021Q2

REPORT INFORMATION
  Report Type: Other
  Country: DE (occurrence: DE)
  Receive Date: 20210625
  Receipt Date: 20210625
  Transmission Date: 20210717
  Serious: Yes (Other)
  Sender: FDA-Public Use
  Company Number: DE-MACLEODS PHARMA UK LTD-MAC2021031658

PATIENT

DRUGS (2)
  1. ESCITALOPRAM [Suspect]
     Active Substance: ESCITALOPRAM OXALATE
     Dosage: 40 MILLIGRAM, 22 ND WEEK (MON?WED?FRI?SUN) 15MG TAKEN, 1 WEEK, 23 KW (MON?WED?FRI?SUN) 10MG; KW 24 (
     Route: 048
     Dates: start: 20210607, end: 20210613
  2. ESCITALOPRAM [Suspect]
     Active Substance: ESCITALOPRAM OXALATE
     Indication: PRODUCT USED FOR UNKNOWN INDICATION
     Dosage: 60 MILLIGRAM, 22 ND WEEK (MON?WED?FRI?SUN) 15MG TAKEN, 1 WEEK
     Route: 048
     Dates: start: 20210531, end: 20210606

REACTIONS (8)
  - Injury [Unknown]
  - Gait disturbance [Unknown]
  - Balance disorder [Unknown]
  - Arrhythmia [Unknown]
  - Feeling cold [Unknown]
  - Eye pain [Unknown]
  - Dizziness [Unknown]
  - Nausea [Unknown]

NARRATIVE: CASE EVENT DATE: 20210601
